FAERS Safety Report 6846963-6 (Version None)
Quarter: 2010Q3

REPORT INFORMATION
  Report Type: 
  Country: None (occurrence: None)
  Receive Date: 20100713
  Receipt Date: 20100701
  Transmission Date: 20110219
  Serious: Yes (Hospitalization)
  Sender: FDA-Public Use
  Company Number: UKP10000079

PATIENT
  Age: 61 Year
  Sex: Female

DRUGS (1)
  1. ACTONEL [Suspect]
     Dosage: 35 MG, 1 /WEEK, ORAL
     Route: 048
     Dates: start: 20091201, end: 20100601

REACTIONS (3)
  - CONFUSIONAL STATE [None]
  - DELIRIUM [None]
  - PARAESTHESIA [None]
